FAERS Safety Report 6173549-1 (Version None)
Quarter: 2009Q2

REPORT INFORMATION
  Report Type: 
  Country: None (occurrence: None)
  Receive Date: 20090430
  Receipt Date: 20090423
  Transmission Date: 20091009
  Serious: Yes (Hospitalization)
  Sender: FDA-Public Use
  Company Number: B0571396A

PATIENT
  Sex: Male

DRUGS (5)
  1. AMOXICILLIN TRIHYDRATE [Suspect]
     Indication: ERYSIPELAS
     Dosage: 1G THREE TIMES PER DAY
     Route: 048
     Dates: start: 20090323, end: 20090325
  2. PYOSTACINE [Suspect]
     Indication: ERYSIPELAS
     Dosage: 1000MG TWICE PER DAY
     Route: 048
     Dates: start: 20090325, end: 20090328
  3. PLAVIX [Concomitant]
     Dosage: 75MG ALTERNATE DAYS
     Route: 048
  4. COZAAR [Concomitant]
     Dosage: 50MG PER DAY
     Route: 048
  5. PRAVASTATIN SODIUM [Concomitant]
     Dosage: 20MG PER DAY
     Route: 048

REACTIONS (2)
  - ABDOMINAL PAIN [None]
  - DIARRHOEA [None]
